FAERS Safety Report 4881063-6 (Version None)
Quarter: 2005Q4

REPORT INFORMATION
  Report Type: 
  Country: None (occurrence: None)
  Receive Date: 20051223
  Receipt Date: 20050928
  Transmission Date: 20060501
  Serious: No
  Sender: FDA-Public Use
  Company Number: 05P-163-0312245-00

PATIENT
  Age: 79 Year
  Sex: Male
  Weight: 68.0396 kg

DRUGS (11)
  1. HUMIRA [Suspect]
     Indication: RHEUMATOID ARTHRITIS
     Dosage: 40 MG, 1 IN 2 WK, SUBCUTANEOUS
     Route: 058
     Dates: start: 20030101
  2. OXYCOCET [Concomitant]
  3. SIMVASTATIN [Concomitant]
  4. FELODIPINE [Concomitant]
  5. FUROSEMIDE [Concomitant]
  6. ALENDRONATE SODIUM [Concomitant]
  7. PREDNISONE [Concomitant]
  8. ASPIRIN [Concomitant]
  9. ASCORBIC ACID [Concomitant]
  10. CALCIUM GLUCONATE [Concomitant]
  11. THERAGRAM-M [Concomitant]

REACTIONS (2)
  - COUGH [None]
  - DYSPNOEA [None]
